FAERS Safety Report 7429705-5 (Version None)
Quarter: 2011Q2

REPORT INFORMATION
  Report Type: 
  Country: None (occurrence: None)
  Receive Date: 20110421
  Receipt Date: 20110415
  Transmission Date: 20111010
  Serious: Yes (Hospitalization)
  Sender: FDA-Public Use
  Company Number: US-B.I. PHARMACEUTICALS,INC./RIDGEFIELD-2011-BP-09684BP

PATIENT
  Sex: Male
  Weight: 125.19 kg

DRUGS (13)
  1. ASPIRIN [Concomitant]
     Dosage: 81 MG
  2. KLOR-CON [Concomitant]
  3. EQ OMEPRAZOLE [Concomitant]
     Dosage: 20 MG
  4. ALLOPURINOL [Concomitant]
     Dosage: 300 MG
  5. LANTUS [Concomitant]
  6. PRADAXA [Suspect]
     Indication: HYPERCOAGULATION
     Dosage: 300 MG
  7. CATAPRES-TTS-3 [Concomitant]
  8. SIMVASTATIN [Concomitant]
     Dosage: 40 MG
  9. NOVOLIN R [Concomitant]
  10. FUROSEMIDE [Concomitant]
     Dosage: 40 MG
  11. SPIRONOLACTONE [Concomitant]
     Dosage: 50 MG
  12. AMLODIPINE BESYLATE [Concomitant]
     Dosage: 5 MG
  13. CARVEDILOL [Concomitant]
     Dosage: 50 MG

REACTIONS (6)
  - HAEMORRHAGE [None]
  - CONTUSION [None]
  - HAEMOPTYSIS [None]
  - HAEMATURIA [None]
  - DYSPNOEA [None]
  - HAEMATEMESIS [None]
